FAERS Safety Report 25555103 (Version 2)
Quarter: 2025Q3

REPORT INFORMATION
  Report Type: Spontaneous
  Country: US (occurrence: US)
  Receive Date: 20250715
  Receipt Date: 20250904
  Transmission Date: 20251021
  Serious: Yes (Other)
  Sender: GLAUKOS
  Company Number: US-GLK-000656

PATIENT
  Age: 74 Year
  Sex: Female

DRUGS (4)
  1. DEVICE [Suspect]
     Active Substance: DEVICE
     Indication: Product used for unknown indication
     Route: 047
     Dates: start: 20241014, end: 20241014
  2. LATANOPROST [Concomitant]
     Active Substance: LATANOPROST
     Route: 047
  3. DORZOLAMIDE [Concomitant]
     Active Substance: DORZOLAMIDE
     Dosage: LEFT EYE
     Route: 047
  4. BRIMONIDINE [Concomitant]
     Active Substance: BRIMONIDINE TARTRATE
     Dosage: LEFT EYE
     Route: 047

REACTIONS (2)
  - Iritis [Recovered/Resolved]
  - Medical device removal [Recovered/Resolved]

NARRATIVE: CASE EVENT DATE: 20250110
